FAERS Safety Report 5927983-2 (Version None)
Quarter: 2008Q4

REPORT INFORMATION
  Report Type: 
  Country: None (occurrence: None)
  Receive Date: 20081022
  Receipt Date: 20081022
  Transmission Date: 20090506
  Serious: Yes (Hospitalization)
  Sender: FDA-Public Use
  Company Number: None

PATIENT
  Age: 47 Year
  Sex: Female
  Weight: 61.5 kg

DRUGS (14)
  1. DOXORUBICIN HCL [Suspect]
     Indication: BREAST CANCER METASTATIC
     Dosage: 103 MG 1 4 WEEKS IV
     Route: 042
     Dates: start: 20080822
  2. DOXORUBICIN HCL [Suspect]
     Indication: BREAST CANCER METASTATIC
     Dosage: 103 MG 1 4 WEEKS IV
     Route: 042
     Dates: start: 20080923
  3. LAPATINIB [Concomitant]
  4. LIDOCAINE [Concomitant]
  5. MAALOX [Concomitant]
  6. BENADRYL [Concomitant]
  7. NYSTATIN [Concomitant]
  8. PROCHLORPERAZINE MALEATE [Concomitant]
  9. LORAZEPAM [Concomitant]
  10. PREVACID [Concomitant]
  11. COMPAZINE [Concomitant]
  12. CICLOPIROX (LOPROX) [Concomitant]
  13. FLUOCINONIDE (LIDEX) [Concomitant]
  14. AMMONIUM LACTATS (LAC-HYDRIN) [Concomitant]

REACTIONS (6)
  - DERMATITIS [None]
  - HYPOPHAGIA [None]
  - MUCOSAL INFLAMMATION [None]
  - PAIN [None]
  - PALMAR-PLANTAR ERYTHRODYSAESTHESIA SYNDROME [None]
  - STOMATITIS [None]
